FAERS Safety Report 8347332-2 (Version None)
Quarter: 2012Q2

REPORT INFORMATION
  Report Type: 
  Country: None (occurrence: None)
  Receive Date: 20120509
  Receipt Date: 20120430
  Transmission Date: 20120825
  Serious: Yes (Hospitalization, Other)
  Sender: FDA-Public Use
  Company Number: US-ROCHE-1064619

PATIENT
  Age: 59 Year
  Sex: Female
  Weight: 74.456 kg

DRUGS (5)
  1. ADRIAMYCIN PFS [Concomitant]
     Indication: BREAST CANCER METASTATIC
     Route: 042
     Dates: end: 20061101
  2. HERCEPTIN [Suspect]
     Indication: BREAST CANCER METASTATIC
     Route: 042
     Dates: start: 20061101, end: 20061130
  3. TYKERB [Concomitant]
     Indication: BREAST CANCER METASTATIC
     Route: 048
  4. TAXOTERE [Concomitant]
     Indication: BREAST CANCER METASTATIC
     Route: 042
     Dates: start: 20061101
  5. XELODA [Concomitant]
     Indication: BREAST CANCER METASTATIC
     Route: 048

REACTIONS (2)
  - CARDIAC FAILURE CONGESTIVE [None]
  - PULMONARY EMBOLISM [None]
